FAERS Safety Report 8997635 (Version 2)
Quarter: 2013Q1

REPORT INFORMATION
  Report Type: Spontaneous
  Country: DE (occurrence: DE)
  Receive Date: 20130104
  Receipt Date: 20130228
  Transmission Date: 20140127
  Serious: Yes (Hospitalization)
  Sender: FDA-Public Use
  Company Number: DE-009507513-1301DEU000610

PATIENT
  Age: 61 Year
  Sex: Female
  Weight: 78 kg

DRUGS (2)
  1. FOSAVANCE [Suspect]
     Indication: OSTEOPOROSIS
     Dosage: 70MG/5600IU, QW
     Route: 048
     Dates: start: 20120301
  2. CHOLECALCIFEROL [Concomitant]

REACTIONS (1)
  - Foot fracture [Recovered/Resolved with Sequelae]
